FAERS Safety Report 7988867-1 (Version None)
Quarter: 2011Q4

REPORT INFORMATION
  Report Type: 
  Country: None (occurrence: None)
  Receive Date: 20111219
  Receipt Date: 20111213
  Transmission Date: 20120403
  Serious: Yes (Hospitalization, Other)
  Sender: FDA-Public Use
  Company Number: NO-JNJFOC-20111206035

PATIENT
  Age: 49 Year
  Sex: Female

DRUGS (3)
  1. TRISEQUENS [Suspect]
     Indication: HORMONE REPLACEMENT THERAPY
     Route: 048
     Dates: end: 20070301
  2. METHOTREXATE [Suspect]
     Indication: PSORIATIC ARTHROPATHY
     Dosage: PERIODIC TREATMENT
     Route: 048
     Dates: start: 19971201, end: 20110101
  3. SIMPONI [Suspect]
     Indication: PSORIATIC ARTHROPATHY
     Route: 058
     Dates: start: 20101021, end: 20110228

REACTIONS (1)
  - BREAST CANCER STAGE II [None]
